FAERS Safety Report 8520898-5 (Version None)
Quarter: 2012Q3

REPORT INFORMATION
  Report Type: 
  Country: None (occurrence: None)
  Receive Date: 20120719
  Receipt Date: 20120709
  Transmission Date: 20120928
  Serious: Yes (Hospitalization)
  Sender: FDA-Public Use
  Company Number: US-BAYER-2012-017341

PATIENT
  Age: 34 Year
  Sex: Female
  Weight: 98.413 kg

DRUGS (32)
  1. MIDRIN [Concomitant]
     Dosage: UNK
     Dates: start: 20050101
  2. YAZ [Suspect]
     Indication: MENSTRUATION IRREGULAR
  3. OMEPRAZOLE MAGNESIUM [Concomitant]
     Dosage: UNK
     Dates: start: 20060101
  4. TRAZODONE HYDROCHLORIDE [Concomitant]
     Dosage: UNK
     Dates: start: 20100211, end: 20100214
  5. NABUMETONE [Concomitant]
     Indication: ANALGESIC THERAPY
     Dosage: 500 MG, UNK
     Route: 048
     Dates: start: 20100211, end: 20100214
  6. DARVOCET-N 50 [Concomitant]
  7. YAZ [Suspect]
     Indication: PREMENSTRUAL SYNDROME
  8. PROPOXYPHENE HCL [Concomitant]
     Dosage: 100-650 MG
     Route: 048
     Dates: start: 20091203
  9. AMBI 60PSE-400GRN [Concomitant]
     Dosage: UNK
     Route: 048
     Dates: start: 20091214
  10. METHOCARBAMOL [Concomitant]
     Dosage: UNK
     Dates: start: 20050101
  11. PREDNISONE [Concomitant]
     Dosage: 5 MG, UNK
     Route: 048
     Dates: start: 20091112
  12. KEFLEX [Concomitant]
     Indication: INFECTION
     Dosage: 500 MG, UNK
     Route: 048
     Dates: start: 20100211, end: 20100214
  13. LIDOCAINE [Concomitant]
     Dosage: UNK
     Route: 061
     Dates: start: 20100215
  14. YAZ [Suspect]
     Indication: ACNE
     Dosage: UNK
     Dates: start: 20090917, end: 20100220
  15. ESGIC-PLUS [Concomitant]
     Dosage: UNK
     Dates: start: 20050101
  16. FLUCONAZOLE [Concomitant]
     Dosage: 150 MG, UNK
     Route: 048
  17. FLEXERIL [Concomitant]
     Indication: MUSCLE RELAXANT THERAPY
     Dosage: 5 MG, UNK
     Route: 048
  18. EPIPEN [Concomitant]
     Dosage: 0.3 MG, UNK
     Dates: start: 20091112
  19. AZITHROMYCIN [Concomitant]
     Dosage: 250 MG, UNK
     Route: 048
     Dates: start: 20091125, end: 20091129
  20. ALBUTEROL [Concomitant]
     Dosage: UNK
     Dates: start: 20000101
  21. SYNTHROID [Concomitant]
     Dosage: UNK
     Dates: start: 19980101
  22. TOPIRAMATE [Concomitant]
     Dosage: UNK
     Dates: start: 20050101
  23. M-END SYRUP [Concomitant]
     Dosage: UNK
     Route: 048
     Dates: start: 20091125
  24. LEVAQUIN [Concomitant]
     Dosage: 750 MG, UNK
     Route: 048
     Dates: start: 20091203
  25. YAZ [Suspect]
     Indication: CONTRACEPTION
  26. GABAPENTIN [Concomitant]
     Dosage: UNK
     Dates: start: 20050101
  27. TAMSULOSIN HCL [Concomitant]
     Dosage: UNK
     Dates: start: 20100101
  28. AMOXICILLIN AND CLAVULANATE POTASSIUM [Concomitant]
     Dosage: 875-125 MG
     Route: 048
     Dates: start: 20091214
  29. ANALGESICS [Concomitant]
     Dosage: UNK
     Dates: start: 20050101
  30. LORTAB [Concomitant]
     Dosage: UNK
     Dates: start: 20000101
  31. VERAMYST [Concomitant]
     Dosage: 27.5 MCG, UNK
     Route: 045
     Dates: start: 20091203
  32. ULTRAM [Concomitant]
     Indication: PAIN
     Dosage: UNK
     Route: 048
     Dates: start: 20100210, end: 20100214

REACTIONS (5)
  - DEEP VEIN THROMBOSIS [None]
  - PAIN [None]
  - CHEST PAIN [None]
  - DEPRESSION [None]
  - PULMONARY EMBOLISM [None]
